FAERS Safety Report 5268800-6 (Version None)
Quarter: 2007Q1

REPORT INFORMATION
  Report Type: 
  Country: None (occurrence: None)
  Receive Date: 20061213
  Receipt Date: 20050401
  Transmission Date: 20070707
  Serious: Yes (Other)
  Sender: FDA-Public Use
  Company Number: 2005UW05089

PATIENT
  Age: 68 Year
  Sex: Female
  Weight: 72 kg

DRUGS (4)
  1. IRESSA [Suspect]
     Indication: NON-SMALL CELL LUNG CANCER
     Dates: start: 20040101
  2. NORVASC [Concomitant]
  3. CLONOPIN [Concomitant]
  4. REMERON [Concomitant]

REACTIONS (2)
  - COUGH [None]
  - DYSPNOEA [None]
